FAERS Safety Report 4990348-4 (Version None)
Quarter: 2006Q2

REPORT INFORMATION
  Report Type: 
  Country: None (occurrence: None)
  Receive Date: 20060427
  Receipt Date: 20060411
  Transmission Date: 20061013
  Serious: Yes (Hospitalization)
  Sender: FDA-Public Use
  Company Number: 110032ISR

PATIENT
  Age: 56 Year
  Sex: Male

DRUGS (3)
  1. FLUOROURACIL [Suspect]
     Indication: COLON CANCER
     Dates: start: 20060309, end: 20060309
  2. OXALIPLATIN [Suspect]
     Indication: COLON CANCER
     Dates: start: 20060309, end: 20060309
  3. FOLINIC ACID [Suspect]
     Indication: COLON CANCER
     Dates: start: 20060309, end: 20060309

REACTIONS (1)
  - ATRIAL FLUTTER [None]
